FAERS Safety Report 24418389 (Version 2)
Quarter: 2024Q4

REPORT INFORMATION
  Report Type: Spontaneous
  Country: US (occurrence: US)
  Receive Date: 20241009
  Receipt Date: 20241015
  Transmission Date: 20250114
  Serious: No
  Sender: INCYTE
  Company Number: US-INCYTE CORPORATION-2024IN010495

PATIENT

DRUGS (1)
  1. JAKAFI [Suspect]
     Active Substance: RUXOLITINIB
     Indication: Myelofibrosis
     Dosage: 10 MILLIGRAM, BID
     Route: 048
     Dates: start: 202303

REACTIONS (1)
  - Dry skin [Unknown]
